FAERS Safety Report 20774333 (Version 1)
Quarter: 2022Q2

REPORT INFORMATION
  Report Type: Report from Study
  Country: MX (occurrence: MX)
  Receive Date: 20220502
  Receipt Date: 20220502
  Transmission Date: 20220721
  Serious: Yes (Hospitalization)
  Sender: FDA-Public Use
  Company Number: MX-ABBVIE-22K-107-4376516-00

PATIENT
  Sex: Female

DRUGS (1)
  1. HUMIRA [Suspect]
     Active Substance: ADALIMUMAB
     Indication: Rheumatoid arthritis
     Route: 058
     Dates: start: 20110405, end: 202204

REACTIONS (3)
  - Gait disturbance [Unknown]
  - Neck pain [Unknown]
  - Osteoporosis [Recovering/Resolving]

NARRATIVE: CASE EVENT DATE: 20220101
